FAERS Safety Report 6900116-1 (Version None)
Quarter: 2010Q3

REPORT INFORMATION
  Report Type: 
  Country: None (occurrence: None)
  Receive Date: 20100803
  Receipt Date: 20100726
  Transmission Date: 20110219
  Serious: Yes (Hospitalization, Disabling, Other)
  Sender: FDA-Public Use
  Company Number: US-BAYER-201018417BCC

PATIENT
  Age: 47 Year
  Sex: Male
  Weight: 76 kg

DRUGS (4)
  1. ALEVE (CAPLET) [Suspect]
     Indication: HEADACHE
     Dosage: TOTAL DAILY DOSE: 440 MG  UNIT DOSE: 220 MG
     Route: 048
     Dates: start: 20070101
  2. ALEVE (CAPLET) [Suspect]
     Indication: HEADACHE
     Dosage: TOTAL DAILY DOSE: 440 MG  UNIT DOSE: 220 MG
     Route: 048
     Dates: start: 20100701
  3. VERAPAMIL [Concomitant]
     Route: 065
  4. SEROQUEL [Concomitant]
     Route: 065

REACTIONS (7)
  - ABDOMINAL PAIN [None]
  - APHAGIA [None]
  - DRY THROAT [None]
  - HAEMATEMESIS [None]
  - NAUSEA [None]
  - RETCHING [None]
  - VOMITING [None]
